FAERS Safety Report 18849563 (Version 4)
Quarter: 2021Q1

REPORT INFORMATION
  Report Type: Spontaneous
  Country: PT (occurrence: PT)
  Receive Date: 20210204
  Receipt Date: 20210301
  Transmission Date: 20210419
  Serious: Yes (Death, Hospitalization, Other)
  Sender: FDA-Public Use
  Company Number: PT-009507513-2101PRT013483

PATIENT
  Age: 57 Year
  Sex: Male

DRUGS (6)
  1. FTC [Suspect]
     Active Substance: EMTRICITABINE
     Dosage: UNK, BID
     Dates: start: 202009
  2. TENOFOVIR DISOPROXIL FUMARATE. [Suspect]
     Active Substance: TENOFOVIR DISOPROXIL FUMARATE
     Dosage: UNK, BID
     Dates: start: 202009
  3. FTC [Suspect]
     Active Substance: EMTRICITABINE
     Dosage: UNK
     Dates: start: 202007, end: 202009
  4. DOLUTEGRAVIR [Concomitant]
     Active Substance: DOLUTEGRAVIR
     Dosage: UNK
     Dates: start: 202007, end: 202009
  5. TENOFOVIR DISOPROXIL FUMARATE. [Suspect]
     Active Substance: TENOFOVIR DISOPROXIL FUMARATE
     Dosage: UNK
     Dates: start: 202007, end: 202009
  6. RALTEGRAVIR POTASSIUM [Suspect]
     Active Substance: RALTEGRAVIR POTASSIUM
     Dosage: UNK, BID
     Route: 048
     Dates: start: 202009

REACTIONS (3)
  - Hepatic encephalopathy [Recovered/Resolved]
  - Hepatic failure [Unknown]
  - Death [Fatal]

NARRATIVE: CASE EVENT DATE: 202010
